FAERS Safety Report 9088390 (Version 1)
Quarter: 2013Q1

REPORT INFORMATION
  Report Type: Report from Study
  Country: US (occurrence: US)
  Receive Date: 20130131
  Receipt Date: 20130131
  Transmission Date: 20140127
  Serious: No
  Sender: FDA-Public Use
  Company Number: US-ABBOTT-12P-163-0995280-00

PATIENT
  Age: 53 Year
  Sex: Female

DRUGS (14)
  1. HUMIRA [Suspect]
     Indication: PSORIASIS
     Dates: start: 20120816
  2. FOLIC ACID [Concomitant]
     Indication: SUPPLEMENTATION THERAPY
  3. VITAMIN B1 [Concomitant]
     Indication: SUPPLEMENTATION THERAPY
  4. POTASSIUM [Concomitant]
     Indication: ADRENAL DISORDER
  5. AMITRIPTYLINE [Concomitant]
     Indication: ANTIDEPRESSANT THERAPY
     Dosage: QHS
  6. LORAZEPAM [Concomitant]
     Indication: ILL-DEFINED DISORDER
  7. PANTOPRAZOLE [Concomitant]
     Indication: GASTROOESOPHAGEAL REFLUX DISEASE
  8. VITAMIN D [Concomitant]
     Indication: VITAMIN D DECREASED
  9. MAG OXIDE [Concomitant]
     Indication: VITAMIN SUPPLEMENTATION
  10. LOVASTATIN [Concomitant]
     Indication: BLOOD CHOLESTEROL INCREASED
     Dosage: QHS
  11. LOSARTAN + HIDROCLOROTIAZIDA [Concomitant]
     Indication: BLOOD PRESSURE
     Dosage: 100/25MG
  12. ESTROVAN [Concomitant]
     Indication: HOT FLUSH
  13. CENTRUM [Concomitant]
     Indication: SUPPLEMENTATION THERAPY
  14. CLOBETASOL [Concomitant]
     Indication: PSORIASIS
     Route: 061

REACTIONS (3)
  - Gait disturbance [Not Recovered/Not Resolved]
  - Pain in extremity [Not Recovered/Not Resolved]
  - Pain in extremity [Not Recovered/Not Resolved]
